FAERS Safety Report 10155035 (Version 1)
Quarter: 2014Q2

REPORT INFORMATION
  Report Type: Spontaneous
  Country: US (occurrence: None)
  Receive Date: 20140505
  Receipt Date: 20140505
  Transmission Date: 20141212
  Serious: No
  Sender: FDA-Public Use
  Company Number: None

PATIENT
  Age: 31 Year
  Sex: Female
  Weight: 68.95 kg

DRUGS (1)
  1. ABILIFY [Suspect]
     Indication: DEPRESSION
     Dosage: 1/2 TO 1 ONCE DAILY TAKEN BY MOUTH
     Dates: start: 20140403, end: 20140501

REACTIONS (4)
  - Akathisia [None]
  - Dysphoria [None]
  - Anxiety [None]
  - Weight increased [None]
